FAERS Safety Report 5131810-3 (Version None)
Quarter: 2006Q4

REPORT INFORMATION
  Report Type: 
  Country: None (occurrence: None)
  Receive Date: 20061016
  Receipt Date: 20061004
  Transmission Date: 20070319
  Serious: Yes (Hospitalization, Other)
  Sender: FDA-Public Use
  Company Number: 2006115619

PATIENT
  Age: 80 Year
  Sex: Male

DRUGS (1)
  1. SOLANAX (ALPRAZOLAM) [Suspect]
     Dosage: 0.8 NG (0.4 MG, 2 IN 1 D), ORAL
     Route: 048
     Dates: start: 20040701, end: 20060901

REACTIONS (2)
  - COMA [None]
  - SUICIDE ATTEMPT [None]
